FAERS Safety Report 8558085-7 (Version None)
Quarter: 2012Q3

REPORT INFORMATION
  Report Type: 
  Country: None (occurrence: None)
  Receive Date: 20120801
  Receipt Date: 20120628
  Transmission Date: 20120928
  Serious: No
  Sender: FDA-Public Use
  Company Number: US-MERCK-2012SP036710

PATIENT

DRUGS (1)
  1. SAPHRIS [Suspect]
     Indication: PRODUCT USED FOR UNKNOWN INDICATION
     Dosage: DOSES BETWEEN 5 TO 20MG

REACTIONS (4)
  - SEDATION [None]
  - SOMNAMBULISM [None]
  - BINGE EATING [None]
  - PSYCHOMOTOR HYPERACTIVITY [None]
